FAERS Safety Report 20866075 (Version 1)
Quarter: 2022Q2

REPORT INFORMATION
  Report Type: Spontaneous
  Country: US (occurrence: US)
  Receive Date: 20220524
  Receipt Date: 20220524
  Transmission Date: 20220721
  Serious: No
  Sender: FDA-Public Use
  Company Number: US-BRISTOL-MYERS SQUIBB COMPANY-2022-030253

PATIENT
  Age: 65 Year
  Sex: Female

DRUGS (2)
  1. ORENCIA [Suspect]
     Active Substance: ABATACEPT
     Indication: Rheumatoid arthritis
     Route: 058
     Dates: start: 201909
  2. COVID-19 VACCINE [Concomitant]
     Indication: COVID-19 immunisation
     Route: 065

REACTIONS (3)
  - Sinusitis [Unknown]
  - Urinary tract infection [Unknown]
  - Intentional product use issue [Unknown]
